FAERS Safety Report 8192367-6 (Version None)
Quarter: 2012Q1

REPORT INFORMATION
  Report Type: 
  Country: None (occurrence: None)
  Receive Date: 20120308
  Receipt Date: 20120229
  Transmission Date: 20120608
  Serious: Yes (Hospitalization, Other)
  Sender: FDA-Public Use
  Company Number: US-AMGEN-USASP2012013383

PATIENT
  Age: 78 Year
  Sex: Female

DRUGS (1)
  1. ENBREL [Suspect]
     Indication: RHEUMATOID ARTHRITIS
     Dosage: 50 MG, QWK
     Dates: start: 19981201, end: 20120107

REACTIONS (12)
  - PULMONARY FIBROSIS [None]
  - JOINT DISLOCATION [None]
  - PRODUCTIVE COUGH [None]
  - WHEEZING [None]
  - RESPIRATORY TRACT INFECTION [None]
  - FALL [None]
  - LUNG INFECTION [None]
  - RHEUMATOID LUNG [None]
  - SINUSITIS [None]
  - CEREBRAL HAEMORRHAGE [None]
  - LOWER LIMB FRACTURE [None]
  - DYSPNOEA EXERTIONAL [None]
